FAERS Safety Report 26121017 (Version 1)
Quarter: 2025Q4

REPORT INFORMATION
  Report Type: Spontaneous
  Country: EU (occurrence: EU)
  Receive Date: 20251204
  Receipt Date: 20251204
  Transmission Date: 20260118
  Serious: Yes (Hospitalization)
  Sender: AUROBINDO
  Company Number: EU-AEMPS-1780427

PATIENT
  Age: 82 Year
  Sex: Female

DRUGS (5)
  1. OMEPRAZOLE [Suspect]
     Active Substance: OMEPRAZOLE
     Indication: Prophylaxis
     Dosage: 1 AL D?A
  2. VECTIBIX [Suspect]
     Active Substance: PANITUMUMAB
     Indication: Colon cancer
     Dosage: 6 MILLIGRAM/KILOGRAM (6MG/KG CADA 14 D?AS)
     Dates: start: 20250826, end: 20250923
  3. Fluorouracilo 50 mg/ml inyectable 10 ml [Concomitant]
     Indication: Colon cancer
     Dosage: UNK
     Dates: start: 20250729, end: 20250923
  4. Oxaliplatino 5 mg/ml inyectable perfusi?n 10 ml [Concomitant]
     Indication: Colon cancer
     Dosage: 85 MILLIGRAM/SQ. METER (85MG/M2 CADA 14 D?AS)
     Dates: start: 20250729, end: 20250923
  5. ?cido fol?nico 350 mg inyectable 1 vial [Concomitant]
     Indication: Colon cancer
     Dosage: 400 MILLIGRAM/SQ. METER (400MG/M2)
     Dates: start: 20250729, end: 20250923

REACTIONS (3)
  - Hypomagnesaemia [Recovering/Resolving]
  - Hypocalcaemia [Recovering/Resolving]
  - Hypophosphataemia [Recovering/Resolving]

NARRATIVE: CASE EVENT DATE: 20251008
